FAERS Safety Report 17248844 (Version 1)
Quarter: 2020Q1

REPORT INFORMATION
  Report Type: Spontaneous
  Country: DK (occurrence: DK)
  Receive Date: 20200108
  Receipt Date: 20200108
  Transmission Date: 20200409
  Serious: Yes (Congenital Anomaly)
  Sender: FDA-Public Use
  Company Number: DK-BAUSCH-BL-2019-066884

PATIENT

DRUGS (1)
  1. VENLAFAXINE [Suspect]
     Active Substance: VENLAFAXINE HYDROCHLORIDE
     Indication: ANXIETY
     Route: 064
     Dates: start: 20180522

REACTIONS (3)
  - Hemimegalencephaly [Recovered/Resolved]
  - Foetal exposure during pregnancy [Not Recovered/Not Resolved]
  - Neuronal migration disorder [Recovered/Resolved]

NARRATIVE: CASE EVENT DATE: 20181204
